FAERS Safety Report 10192025 (Version 1)
Quarter: 2014Q2

REPORT INFORMATION
  Report Type: Spontaneous
  Country: GB (occurrence: GB)
  Receive Date: 20140523
  Receipt Date: 20140523
  Transmission Date: 20141212
  Serious: Yes (Death)
  Sender: FDA-Public Use
  Company Number: GB-PFIZER INC-2014140561

PATIENT
  Age: 34 Year
  Sex: Male

DRUGS (4)
  1. VENLAFAXINE HCL [Suspect]
     Dosage: 150 MG, DAILY
  2. AMISULPRIDE [Suspect]
     Dosage: UNK
  3. CLOZARIL [Suspect]
     Indication: SCHIZOPHRENIA
     Dosage: UNK
     Dates: start: 20050818
  4. CLOZARIL [Suspect]
     Dosage: 400 MG, DAILY

REACTIONS (2)
  - Cardiac arrest [Fatal]
  - Toxicity to various agents [Fatal]
